FAERS Safety Report 5239540-4 (Version None)
Quarter: 2007Q1

REPORT INFORMATION
  Report Type: 
  Country: None (occurrence: None)
  Receive Date: 20070216
  Receipt Date: 20070213
  Transmission Date: 20070707
  Serious: Yes (Hospitalization)
  Sender: FDA-Public Use
  Company Number: DE-SOLVAY-00307000446

PATIENT
  Age: 23049 Day
  Sex: Male

DRUGS (9)
  1. INSULIN BASAL [Concomitant]
     Indication: DIABETES MELLITUS
     Dosage: DAILY DOSE:  UNKNOWN
     Route: 065
  2. TESTOSTERONE [Suspect]
     Indication: ILL-DEFINED DISORDER
     Dosage: DAILY DOSE: 50 MILLIGRAM(S)
     Route: 061
     Dates: start: 20060101
  3. METOPROLOL SUCCINATE [Concomitant]
     Indication: HYPERTENSION
     Dosage: DAILY DOSE:  UNKNOWN
     Route: 065
  4. TESTOGEL VS PLACEBO [Suspect]
     Indication: ANDROGEN DEFICIENCY
     Dosage: DAILY DOSE:  UNKNOWN
     Route: 061
     Dates: start: 20050802
  5. PENTAERYTHRITOL TETRANITRATE [Concomitant]
     Indication: PROPHYLAXIS
     Dosage: DAILY DOSE:  UNKNOWN
     Route: 065
  6. ACETYLSALICYLIC ACID SRT [Concomitant]
     Indication: PROPHYLAXIS
     Dosage: DAILY DOSE:  UNKNOWN
     Route: 065
  7. BETAHISTINE [Concomitant]
     Indication: TINNITUS
     Dosage: DAILY DOSE:  UNKNOWN
     Route: 065
     Dates: start: 20051001
  8. ALPHA-LIPONSAURE [Concomitant]
     Indication: POLYNEUROPATHY
     Dosage: DAILY DOSE:  UNKNOWN
     Route: 065
     Dates: start: 20051001
  9. DELIX PLUS [Concomitant]
     Indication: HYPERTENSION
     Dosage: DAILY DOSE:  UNKNOWN
     Route: 065
     Dates: start: 20060207

REACTIONS (1)
  - DIARRHOEA INFECTIOUS [None]
